FAERS Safety Report 5015679-3 (Version None)
Quarter: 2006Q2

REPORT INFORMATION
  Report Type: 
  Country: None (occurrence: None)
  Receive Date: 20060601
  Receipt Date: 20060524
  Transmission Date: 20061013
  Serious: Yes (Hospitalization, Other)
  Sender: FDA-Public Use
  Company Number: US-GLAXOSMITHKLINE-B0425208A

PATIENT
  Age: 34 Year
  Sex: Female
  Weight: 78 kg

DRUGS (1)
  1. ZOFRAN [Suspect]
     Dates: start: 20060523, end: 20060523

REACTIONS (3)
  - ASTHENIA [None]
  - HEADACHE [None]
  - PALATAL OEDEMA [None]
